FAERS Safety Report 9621286 (Version 1)
Quarter: 2013Q4

REPORT INFORMATION
  Report Type: Spontaneous
  Country: US (occurrence: US)
  Receive Date: 20131015
  Receipt Date: 20131015
  Transmission Date: 20140711
  Serious: Yes (Hospitalization)
  Sender: FDA-Public Use
  Company Number: US-BAYER-2013-124231

PATIENT
  Age: 38 Year
  Sex: Female
  Weight: 56.24 kg

DRUGS (3)
  1. YAZ [Suspect]
  2. BENZACLIN [Concomitant]
     Dosage: QD DAILY
     Dates: start: 20090105
  3. TRETINOIN [Concomitant]
     Dosage: 0.05 %, HS
     Dates: start: 20090105

REACTIONS (1)
  - Pulmonary embolism [None]
